FAERS Safety Report 20214185 (Version 1)
Quarter: 2021Q4

REPORT INFORMATION
  Report Type: Spontaneous
  Country: ES (occurrence: ES)
  Receive Date: 20211221
  Receipt Date: 20211221
  Transmission Date: 20220303
  Serious: Yes (Life-Threatening, Hospitalization)
  Sender: FDA-Public Use
  Company Number: ES-MYLANLABS-2021M1094908

PATIENT
  Age: 75 Year
  Sex: Male

DRUGS (1)
  1. VANCOMYCIN [Suspect]
     Active Substance: VANCOMYCIN
     Indication: Skin ulcer
     Dosage: 10 MILLILITER
     Route: 042

REACTIONS (2)
  - Kounis syndrome [Recovering/Resolving]
  - Anaphylactic shock [Recovering/Resolving]
